FAERS Safety Report 20335447 (Version 1)
Quarter: 2022Q1

REPORT INFORMATION
  Report Type: Spontaneous
  Country: TR (occurrence: None)
  Receive Date: 20220114
  Receipt Date: 20220114
  Transmission Date: 20220423
  Serious: Yes (Hospitalization, Other)
  Sender: FDA-Public Use
  Company Number: TR-MICRO LABS LIMITED-ML2022-00058

PATIENT
  Age: 36 Year
  Sex: Male

DRUGS (7)
  1. BUPROPION [Suspect]
     Active Substance: BUPROPION
     Indication: Ex-tobacco user
     Dosage: EXTENDED-RELEASE
  2. BUPROPION [Suspect]
     Active Substance: BUPROPION
     Dosage: 450?750 MG/D
  3. BUPROPION [Suspect]
     Active Substance: BUPROPION
     Dosage: 750?1500 MG
  4. BUPROPION [Suspect]
     Active Substance: BUPROPION
     Dosage: EXTENDED-RELEASE
  5. VENLAFAXINE [Concomitant]
     Active Substance: VENLAFAXINE HYDROCHLORIDE
  6. METHYLPHENIDATE [Concomitant]
     Active Substance: METHYLPHENIDATE
  7. ALPRAZOLAM [Concomitant]
     Active Substance: ALPRAZOLAM

REACTIONS (18)
  - Intentional product misuse [Unknown]
  - Wrong technique in product usage process [Unknown]
  - Substance use disorder [Unknown]
  - Fear [Unknown]
  - Hypoaesthesia [Unknown]
  - Sinus tachycardia [Unknown]
  - Flushing [Unknown]
  - Depersonalisation/derealisation disorder [Unknown]
  - Psychomotor hyperactivity [Unknown]
  - Tremor [Unknown]
  - Hyperhidrosis [Unknown]
  - Irritability [Unknown]
  - Insomnia [Unknown]
  - Panic attack [Unknown]
  - Palpitations [Unknown]
  - Anxiety [Unknown]
  - Intentional overdose [Unknown]
  - Off label use [Unknown]
